FAERS Safety Report 19824056 (Version 2)
Quarter: 2021Q4

REPORT INFORMATION
  Report Type: Other
  Country: JP (occurrence: JP)
  Receive Date: 20210914
  Receipt Date: 20211008
  Transmission Date: 20220303
  Serious: Yes (Death, Other)
  Sender: FDA-Public Use
  Company Number: JP-CHUGAI-2021006119

PATIENT
  Age: 42 Year
  Sex: Female

DRUGS (3)
  1. KADCYLA [Suspect]
     Active Substance: ADO-TRASTUZUMAB EMTANSINE
     Indication: Breast cancer recurrent
     Route: 058
     Dates: start: 202006, end: 202008
  2. KADCYLA [Suspect]
     Active Substance: ADO-TRASTUZUMAB EMTANSINE
     Route: 058
     Dates: start: 202008, end: 202010
  3. KADCYLA [Suspect]
     Active Substance: ADO-TRASTUZUMAB EMTANSINE
     Route: 058
     Dates: start: 202010, end: 202011

REACTIONS (4)
  - Platelet count decreased [Not Recovered/Not Resolved]
  - Anaemia [Not Recovered/Not Resolved]
  - Disease progression [Fatal]
  - Incorrect route of product administration [Unknown]

NARRATIVE: CASE EVENT DATE: 20210801
